FAERS Safety Report 6325224-8 (Version None)
Quarter: 2009Q3

REPORT INFORMATION
  Report Type: 
  Country: None (occurrence: None)
  Receive Date: 20090824
  Receipt Date: 20090820
  Transmission Date: 20100115
  Serious: Yes (Death)
  Sender: FDA-Public Use
  Company Number: PHEH2009US09640

PATIENT
  Sex: Male

DRUGS (2)
  1. EXJADE [Suspect]
     Indication: SICKLE CELL ANAEMIA
     Dosage: 1000 MG/DAY
     Route: 048
     Dates: start: 20090723
  2. EXJADE [Suspect]
     Indication: IRON OVERLOAD

REACTIONS (1)
  - DEATH [None]
